FAERS Safety Report 9067748 (Version 2)
Quarter: 2013Q1

REPORT INFORMATION
  Report Type: Spontaneous
  Country: US (occurrence: US)
  Receive Date: 20130206
  Receipt Date: 20130220
  Transmission Date: 20140127
  Serious: No
  Sender: FDA-Public Use
  Company Number: US-PFIZER INC-2013044547

PATIENT
  Age: 92 Year
  Sex: Female

DRUGS (1)
  1. PREMPRO [Suspect]
     Indication: HEAD TITUBATION
     Dosage: 1 DF (1 TABLET) DAILY, AS NEEDED
     Route: 048

REACTIONS (2)
  - Off label use [Unknown]
  - Therapeutic response unexpected [Unknown]
